FAERS Safety Report 10906249 (Version 1)
Quarter: 2015Q1

REPORT INFORMATION
  Report Type: Spontaneous
  Country: US (occurrence: US)
  Receive Date: 20150311
  Receipt Date: 20150311
  Transmission Date: 20150721
  Serious: No
  Sender: FDA-Public Use
  Company Number: US-CELGENEUS-USA-2015015098

PATIENT
  Age: 50 Year
  Sex: Female

DRUGS (3)
  1. HALOG [Concomitant]
     Active Substance: HALCINONIDE
     Indication: PSORIASIS
     Route: 061
  2. OTEZLA [Suspect]
     Active Substance: APREMILAST
     Indication: PSORIASIS
     Dosage: 60 MILLIGRAM
     Route: 048
     Dates: start: 20141117
  3. PROTOPIC [Concomitant]
     Active Substance: TACROLIMUS
     Indication: PSORIASIS
     Route: 061

REACTIONS (4)
  - Rash [Not Recovered/Not Resolved]
  - Headache [Not Recovered/Not Resolved]
  - Head discomfort [Not Recovered/Not Resolved]
  - Pruritus [Not Recovered/Not Resolved]

NARRATIVE: CASE EVENT DATE: 20141117
